FAERS Safety Report 15178150 (Version 8)
Quarter: 2022Q1

REPORT INFORMATION
  Report Type: Spontaneous
  Country: DE (occurrence: DE)
  Receive Date: 20180721
  Receipt Date: 20220207
  Transmission Date: 20220423
  Serious: Yes (Death, Hospitalization, Other)
  Sender: FDA-Public Use
  Company Number: None

PATIENT
  Age: 80 Year
  Sex: Female

DRUGS (3)
  1. CLOPIDOGREL [Suspect]
     Active Substance: CLOPIDOGREL BISULFATE
     Indication: Anticoagulant therapy
     Dosage: UNK
     Route: 065
  2. ASPIRIN [Suspect]
     Active Substance: ASPIRIN
     Indication: Anticoagulant therapy
     Route: 065
  3. ELIQUIS [Suspect]
     Active Substance: APIXABAN
     Indication: Anticoagulant therapy
     Route: 065

REACTIONS (13)
  - Diverticulitis [Fatal]
  - Diverticulum intestinal haemorrhagic [Fatal]
  - Osteomyelitis [Fatal]
  - Diverticulum [Fatal]
  - Osteonecrosis [Fatal]
  - Multiple organ dysfunction syndrome [Fatal]
  - Abscess limb [Fatal]
  - Anal stenosis [Fatal]
  - Rectal haemorrhage [Fatal]
  - Anaemia [Fatal]
  - Anal haemorrhage [Fatal]
  - Septic shock [Fatal]
  - Blood lactate dehydrogenase increased [Unknown]
